FAERS Safety Report 6963773-X (Version None)
Quarter: 2010Q3

REPORT INFORMATION
  Report Type: 
  Country: None (occurrence: None)
  Receive Date: 20100902
  Receipt Date: 20100827
  Transmission Date: 20110219
  Serious: Yes (Hospitalization)
  Sender: FDA-Public Use
  Company Number: FR-KINGPHARMUSA00001-K201001088

PATIENT
  Age: 60 Year
  Sex: Male

DRUGS (6)
  1. ALTACE [Suspect]
     Indication: HYPERTENSION
     Dosage: 2.5 MG, BID
     Route: 048
     Dates: start: 20050101, end: 20100722
  2. ALTACE [Suspect]
     Dosage: 2.5 MG, QD
     Route: 048
     Dates: start: 20100729
  3. LITHIUM CARBONATE [Suspect]
     Indication: SCHIZOAFFECTIVE DISORDER
     Dosage: 450 MG, QD
     Route: 048
     Dates: start: 20080101, end: 20100701
  4. LITHIUM [Suspect]
     Indication: SCHIZOAFFECTIVE DISORDER
     Dosage: 295 MG, QD
     Route: 048
     Dates: start: 20080101, end: 20100701
  5. METFORMIN [Concomitant]
     Dosage: UNK
     Dates: start: 20060101, end: 20100718
  6. METOPROLOL SUCCINATE [Concomitant]
     Dosage: UNK
     Dates: start: 20050101

REACTIONS (8)
  - ABDOMINAL DISCOMFORT [None]
  - BALANCE DISORDER [None]
  - BLOOD CREATINE INCREASED [None]
  - DRUG CLEARANCE DECREASED [None]
  - DRUG INTERACTION [None]
  - FALL [None]
  - RENAL FAILURE ACUTE [None]
  - THERAPEUTIC AGENT TOXICITY [None]
